FAERS Safety Report 8782542 (Version 2)
Quarter: 2012Q4

REPORT INFORMATION
  Report Type: 
  Country: US (occurrence: US)
  Receive Date: 20120913
  Receipt Date: 20121026
  Transmission Date: 20130627
  Serious: No
  Sender: FDA-Public Use
  Company Number: US-ASTRAZENECA-2012SE65865

PATIENT
  Age: 31 Year
  Sex: Male

DRUGS (1)
  1. SYMBICORT PMDI [Suspect]
     Indication: ASTHMA
     Dosage: 80/4.5, 2 PUFFS BID
     Route: 055
     Dates: start: 20120810

REACTIONS (2)
  - Dysgeusia [Unknown]
  - Dyspnoea [Unknown]
